FAERS Safety Report 6105287-5 (Version None)
Quarter: 2009Q1

REPORT INFORMATION
  Report Type: 
  Country: None (occurrence: None)
  Receive Date: 20090227
  Receipt Date: 20080206
  Transmission Date: 20090719
  Serious: Yes (Hospitalization, Other)
  Sender: FDA-Public Use
  Company Number: RB-8687-2007

PATIENT
  Age: 24 Year
  Sex: Male
  Weight: 77.1115 kg

DRUGS (4)
  1. SUBOXONE [Suspect]
     Indication: DRUG DEPENDENCE
     Dosage: 4 MG SUBLINGUAL, 2 MG SUBLINGUAL
     Route: 060
     Dates: start: 20071130, end: 20071130
  2. SUBOXONE [Suspect]
     Indication: DRUG DEPENDENCE
     Dosage: 4 MG SUBLINGUAL, 2 MG SUBLINGUAL
     Route: 060
     Dates: start: 20071201
  3. SUBUTEX [Suspect]
     Indication: DRUG DEPENDENCE
     Dosage: 4 MG SUBLINGUAL
     Route: 060
     Dates: start: 20071217
  4. NEXIUM [Concomitant]

REACTIONS (9)
  - ANKLE FRACTURE [None]
  - CONTUSION [None]
  - DIZZINESS [None]
  - EUPHORIC MOOD [None]
  - LOSS OF CONSCIOUSNESS [None]
  - PAIN [None]
  - RIB FRACTURE [None]
  - ROAD TRAFFIC ACCIDENT [None]
  - TACHYCARDIA [None]
